FAERS Safety Report 5933880-9 (Version None)
Quarter: 2008Q4

REPORT INFORMATION
  Report Type: 
  Country: None (occurrence: None)
  Receive Date: 20081029
  Receipt Date: 20081021
  Transmission Date: 20090506
  Serious: Yes (Hospitalization, Other)
  Sender: FDA-Public Use
  Company Number: US-TEVA-173114USA

PATIENT
  Sex: Female
  Weight: 59.02 kg

DRUGS (5)
  1. AZILECT [Suspect]
     Indication: PARKINSON'S DISEASE
     Dates: start: 20061201
  2. SINEMET [Concomitant]
  3. ACETYLSALICYLIC ACID SRT [Concomitant]
  4. LEVOTHYROXINE SODIUM [Concomitant]
  5. GABAPENTIN [Concomitant]

REACTIONS (3)
  - FOOD INTERACTION [None]
  - HYPERTENSIVE CRISIS [None]
  - TACHYCARDIA [None]
